FAERS Safety Report 11295837 (Version 1)
Quarter: 2015Q3

REPORT INFORMATION
  Report Type: Spontaneous
  Country: US (occurrence: US)
  Receive Date: 20150722
  Receipt Date: 20150722
  Transmission Date: 20151125
  Serious: No
  Sender: FDA-Public Use
  Company Number: US-ELI_LILLY_AND_COMPANY-US_000847606

PATIENT
  Age: 58 Year
  Sex: Female
  Weight: 86.36 kg

DRUGS (1)
  1. EVISTA [Suspect]
     Active Substance: RALOXIFENE HYDROCHLORIDE
     Indication: OSTEOPOROSIS PROPHYLAXIS
     Dosage: 60 MG, DAILY (1/D)
     Route: 048
     Dates: start: 199911

REACTIONS (4)
  - Hyperhidrosis [Unknown]
  - Hot flush [Unknown]
  - Vitamin D decreased [Unknown]
  - Bone loss [Unknown]

NARRATIVE: CASE EVENT DATE: 200005
